FAERS Safety Report 11710406 (Version 1)
Quarter: 2015Q4

REPORT INFORMATION
  Report Type: Spontaneous
  Country: US (occurrence: US)
  Receive Date: 20151104
  Receipt Date: 20151104
  Transmission Date: 20160304
  Serious: No
  Sender: FDA-Public Use
  Company Number: US-ELI_LILLY_AND_COMPANY-US201104003878

PATIENT
  Sex: Female

DRUGS (2)
  1. FORTEO [Suspect]
     Active Substance: TERIPARATIDE
     Dosage: 20 UG, QD
     Dates: start: 201103, end: 20110401
  2. FORTEO [Suspect]
     Active Substance: TERIPARATIDE
     Indication: OSTEOPOROSIS
     Dosage: 20 UG, QD

REACTIONS (11)
  - Arthralgia [Recovering/Resolving]
  - Nightmare [Recovered/Resolved]
  - Arthralgia [Unknown]
  - Middle insomnia [Unknown]
  - Restless legs syndrome [Recovered/Resolved]
  - Pain in extremity [Recovering/Resolving]
  - Headache [Recovered/Resolved]
  - Feeling abnormal [Recovered/Resolved]
  - Polymyalgia rheumatica [Unknown]
  - Insomnia [Unknown]
  - Nausea [Recovered/Resolved]
